FAERS Safety Report 7327237-6 (Version None)
Quarter: 2011Q1

REPORT INFORMATION
  Report Type: 
  Country: None (occurrence: None)
  Receive Date: 20110302
  Receipt Date: 20100430
  Transmission Date: 20110831
  Serious: No
  Sender: FDA-Public Use
  Company Number: US-ABBOTT-10P-163-0642596-00

PATIENT
  Sex: Female
  Weight: 68.1 kg

DRUGS (2)
  1. VALPROIC ACID [Suspect]
     Indication: RETINITIS PIGMENTOSA
     Dates: start: 20100403, end: 20100429
  2. LUMIGAN [Concomitant]
     Indication: GLAUCOMA

REACTIONS (1)
  - RASH [None]
